FAERS Safety Report 23533282 (Version 2)
Quarter: 2024Q1

REPORT INFORMATION
  Report Type: Spontaneous
  Country: US (occurrence: US)
  Receive Date: 20240216
  Receipt Date: 20240327
  Transmission Date: 20240410
  Serious: No
  Sender: FDA-Public Use
  Company Number: US-ABBVIE-5637641

PATIENT
  Sex: Male
  Weight: 130 kg

DRUGS (3)
  1. RINVOQ [Suspect]
     Active Substance: UPADACITINIB
     Indication: Colitis ulcerative
     Dosage: STRENGTH- 45 MG
     Route: 048
     Dates: start: 20240206, end: 20240209
  2. RINVOQ [Suspect]
     Active Substance: UPADACITINIB
     Indication: Colitis ulcerative
     Dosage: LAST ADMIN DATE 2024 FORM STRENGTH: 45MG
     Route: 048
     Dates: start: 20240102
  3. PANTOPRAZOLE [Concomitant]
     Active Substance: PANTOPRAZOLE
     Indication: Gastrooesophageal reflux disease
     Route: 048

REACTIONS (13)
  - Myalgia [Unknown]
  - Brain fog [Unknown]
  - Nausea [Unknown]
  - Abdominal distension [Unknown]
  - Headache [Unknown]
  - Feeling abnormal [Unknown]
  - Bone pain [Unknown]
  - Feeling abnormal [Unknown]
  - Oropharyngeal pain [Unknown]
  - Nausea [Recovered/Resolved]
  - Pain [Unknown]
  - Loss of personal independence in daily activities [Unknown]
  - Fatigue [Unknown]

NARRATIVE: CASE EVENT DATE: 20240101
